FAERS Safety Report 16197041 (Version 1)
Quarter: 2019Q2

REPORT INFORMATION
  Report Type: Spontaneous
  Country: US (occurrence: US)
  Receive Date: 20190415
  Receipt Date: 20190415
  Transmission Date: 20190711
  Serious: No
  Sender: FDA-Public Use
  Company Number: US-PFIZER INC-2019125024

PATIENT
  Age: 6 Month
  Sex: Female

DRUGS (1)
  1. EUCRISA [Suspect]
     Active Substance: CRISABOROLE
     Dosage: UNK, APPLY TO AFFECTED AREAS TWICE A DAY IN A THIN LAYER
     Dates: start: 201903

REACTIONS (2)
  - Drug ineffective [Unknown]
  - Product use issue [Unknown]
